FAERS Safety Report 14317851 (Version 1)
Quarter: 2017Q4

REPORT INFORMATION
  Report Type: Spontaneous
  Country: AU (occurrence: AU)
  Receive Date: 20171221
  Receipt Date: 20171221
  Transmission Date: 20180321
  Serious: Yes (Hospitalization, Disabling, Other)
  Sender: FDA-Public Use
  Company Number: None

PATIENT
  Age: 27 Year
  Sex: Male
  Weight: 64 kg

DRUGS (2)
  1. ALOE VERA JUICE [Concomitant]
  2. DIPROSONE [Suspect]
     Active Substance: BETAMETHASONE DIPROPIONATE
     Indication: ECZEMA
     Route: 061
     Dates: start: 20120101, end: 20131231

REACTIONS (9)
  - Pruritus [None]
  - Suicide attempt [None]
  - Eczema [None]
  - Wound [None]
  - Dermatitis [None]
  - Impaired healing [None]
  - Educational problem [None]
  - Impaired work ability [None]
  - Insomnia [None]

NARRATIVE: CASE EVENT DATE: 20140101
